FAERS Safety Report 8396456-2 (Version None)
Quarter: 2012Q2

REPORT INFORMATION
  Report Type: 
  Country: None (occurrence: None)
  Receive Date: 20120530
  Receipt Date: 19970908
  Transmission Date: 20120825
  Serious: Yes (Other)
  Sender: FDA-Public Use
  Company Number: US-ROCHE-GNE030110

PATIENT
  Sex: Male
  Weight: 43.046 kg

DRUGS (1)
  1. SOMATREM [Suspect]
     Indication: PRODUCT USED FOR UNKNOWN INDICATION
     Route: 058
     Dates: start: 19951214, end: 19970625

REACTIONS (1)
  - MALIGNANT MELANOMA [None]
